FAERS Safety Report 10170851 (Version 2)
Quarter: 2014Q2

REPORT INFORMATION
  Report Type: Report from Study
  Country: US (occurrence: US)
  Receive Date: 20140514
  Receipt Date: 20140514
  Transmission Date: 20141212
  Serious: Yes (Hospitalization)
  Sender: FDA-Public Use
  Company Number: US-JNJFOC-20140407835

PATIENT
  Sex: Female
  Weight: 86.18 kg

DRUGS (4)
  1. INVEGA SUSTENNA [Suspect]
     Indication: DEPRESSION
     Route: 030
     Dates: start: 2011
  2. METFORMIN [Concomitant]
     Indication: DIABETES MELLITUS
     Route: 048
     Dates: start: 2013
  3. KLORCON [Concomitant]
     Indication: PRODUCT USED FOR UNKNOWN INDICATION
     Route: 048
     Dates: start: 2013
  4. GLIPIZIDE [Concomitant]
     Indication: THROMBOSIS
     Route: 048
     Dates: start: 2013

REACTIONS (14)
  - Gallbladder disorder [Unknown]
  - Pain [Unknown]
  - Renal disorder [Unknown]
  - Abasia [Unknown]
  - Dyspnoea [Unknown]
  - Hypoaesthesia [Unknown]
  - Weight increased [Unknown]
  - Diabetes mellitus [Unknown]
  - Depression [Unknown]
  - Pain in extremity [Unknown]
  - Skin discolouration [Unknown]
  - Movement disorder [Unknown]
  - Off label use [Unknown]
  - Peripheral swelling [Unknown]
